FAERS Safety Report 7036399-X (Version None)
Quarter: 2010Q4

REPORT INFORMATION
  Report Type: 
  Country: None (occurrence: None)
  Receive Date: 20101010
  Receipt Date: 20100928
  Transmission Date: 20110411
  Serious: Yes (Other)
  Sender: FDA-Public Use
  Company Number: PHEH2008US10860

PATIENT
  Sex: Female

DRUGS (2)
  1. ZOMETA [Suspect]
     Dosage: 4 MG, QMO
     Dates: start: 20030101
  2. TAMOXIFEN CITRATE [Concomitant]

REACTIONS (5)
  - BONE DENSITY DECREASED [None]
  - ENDODONTIC PROCEDURE [None]
  - OSTEONECROSIS OF JAW [None]
  - TOOTH DISORDER [None]
  - TOOTH LOSS [None]
